FAERS Safety Report 8227429-8 (Version None)
Quarter: 2012Q1

REPORT INFORMATION
  Report Type: 
  Country: None (occurrence: None)
  Receive Date: 20120322
  Receipt Date: 20120308
  Transmission Date: 20120608
  Serious: Yes (Disabling, Other)
  Sender: FDA-Public Use
  Company Number: DK-AMGEN-DNKSP2010007885

PATIENT
  Age: 59 Year
  Sex: Female

DRUGS (4)
  1. ENBREL [Suspect]
     Indication: PSORIASIS
     Dosage: 50 MG, WEEKLY
     Dates: start: 20090422, end: 20100510
  2. ENBREL [Suspect]
     Dosage: UNK MG, UNK
     Dates: start: 20050901, end: 20070129
  3. ENBREL [Suspect]
     Dosage: 75 MG, WEEKLY
     Dates: start: 20080812, end: 20090421
  4. ENBREL [Suspect]
     Dosage: 50 MG, 2X/WEEK
     Dates: start: 20080610, end: 20080811

REACTIONS (11)
  - CENTRAL NERVOUS SYSTEM LESION [None]
  - VITAMIN B12 DEFICIENCY [None]
  - FOLATE DEFICIENCY [None]
  - PARAESTHESIA [None]
  - DISTURBANCE IN ATTENTION [None]
  - HYPERCALCAEMIA [None]
  - FATIGUE [None]
  - DIZZINESS [None]
  - DEMYELINATION [None]
  - TREMOR [None]
  - GAIT DISTURBANCE [None]
